FAERS Safety Report 5989501-2 (Version None)
Quarter: 2008Q4

REPORT INFORMATION
  Report Type: 
  Country: None (occurrence: None)
  Receive Date: 20081210
  Receipt Date: 20081201
  Transmission Date: 20090506
  Serious: Yes (Hospitalization, Other)
  Sender: FDA-Public Use
  Company Number: US-ALLERGAN-0810807US

PATIENT
  Sex: Male

DRUGS (3)
  1. BOTOX COSMETIC [Suspect]
     Indication: SKIN WRINKLING
     Dosage: 0.8 ML, SINGLE
     Route: 030
     Dates: start: 20080825, end: 20080825
  2. UNSPECIFIED [Concomitant]
     Dosage: UNK, SINGLE
     Dates: start: 20080825, end: 20080825
  3. DIOVAN [Concomitant]

REACTIONS (13)
  - ATAXIA [None]
  - BRAIN STEM INFARCTION [None]
  - CEREBRAL ARTERY OCCLUSION [None]
  - CEREBRAL INFARCTION [None]
  - CEREBROVASCULAR ACCIDENT [None]
  - CONFUSIONAL STATE [None]
  - COORDINATION ABNORMAL [None]
  - DEPRESSED LEVEL OF CONSCIOUSNESS [None]
  - DYSARTHRIA [None]
  - EMBOLIC STROKE [None]
  - GAIT DISTURBANCE [None]
  - INCOHERENT [None]
  - SOMNOLENCE [None]
